FAERS Safety Report 11651703 (Version 1)
Quarter: 2015Q4

REPORT INFORMATION
  Report Type: Spontaneous
  Country: US (occurrence: None)
  Receive Date: 20151021
  Receipt Date: 20151021
  Transmission Date: 20160304
  Serious: No
  Sender: FDA-Public Use
  Company Number: None

PATIENT
  Age: 79 Year
  Sex: Female
  Weight: 58.2 kg

DRUGS (1)
  1. ADCIRCA [Suspect]
     Active Substance: TADALAFIL
     Route: 048
     Dates: start: 201410

REACTIONS (4)
  - Therapy cessation [None]
  - Headache [None]
  - Therapy change [None]
  - Vertigo [None]

NARRATIVE: CASE EVENT DATE: 20150401
